FAERS Safety Report 12251656 (Version 1)
Quarter: 2016Q2

REPORT INFORMATION
  Report Type: Spontaneous
  Country: US (occurrence: US)
  Receive Date: 20160410
  Receipt Date: 20160410
  Transmission Date: 20160815
  Serious: No
  Sender: FDA-Public Use
  Company Number: US-ASTRAZENECA-2016SE37339

PATIENT
  Sex: Male

DRUGS (1)
  1. NEXIUM 24HR [Suspect]
     Active Substance: ESOMEPRAZOLE MAGNESIUM
     Dosage: DOCTOR TOLD HIM TO TAKE IT ONCE DAILY AND HE HAS BEEN FOR 5 DAYS IN THE MORNING AS DIRECTED
     Route: 048

REACTIONS (2)
  - Diarrhoea [Unknown]
  - Chromaturia [Unknown]
